FAERS Safety Report 18918967 (Version 1)
Quarter: 2021Q1

REPORT INFORMATION
  Report Type: Report from Study
  Country: HU (occurrence: HU)
  Receive Date: 20210220
  Receipt Date: 20210220
  Transmission Date: 20210420
  Serious: Yes (Other)
  Sender: FDA-Public Use
  Company Number: NVSC2020HU292001

PATIENT
  Age: 14 Month
  Sex: Male
  Weight: 9.3 kg

DRUGS (14)
  1. ZOLGENSMA [Suspect]
     Active Substance: ONASEMNOGENE ABEPARVOVEC-XIOI
     Indication: SPINAL MUSCULAR ATROPHY
     Dosage: 5.5 ML, ONCE/SINGLE (1X5.5ML)
     Route: 042
     Dates: start: 20200804
  2. PREDNISOLON [Concomitant]
     Active Substance: PREDNISOLONE
     Dosage: UNK (0.75 MG/TTKG/NAP)
     Route: 065
     Dates: start: 20200901, end: 20200908
  3. NUSINERSEN [Concomitant]
     Active Substance: NUSINERSEN
     Indication: PRODUCT USED FOR UNKNOWN INDICATION
     Dosage: UNK
     Route: 065
  4. ZOLGENSMA [Suspect]
     Active Substance: ONASEMNOGENE ABEPARVOVEC-XIOI
     Dosage: 8.3 ML, ONCE/SINGLE  (6X8.3 ML)
     Route: 042
     Dates: start: 20200804
  5. FAMOTIDIN [Concomitant]
     Active Substance: FAMOTIDINE
     Indication: PRODUCT USED FOR UNKNOWN INDICATION
     Dosage: UNK ( 1 MG/TTKG/NAP)
     Route: 065
     Dates: start: 20200803
  6. FAMOTIDIN [Concomitant]
     Active Substance: FAMOTIDINE
     Dosage: 5 MG, BID
     Route: 065
  7. PREDNISOLON [Concomitant]
     Active Substance: PREDNISOLONE
     Indication: PRODUCT USED FOR UNKNOWN INDICATION
     Dosage: UNK (1 MG/TTKG/NAP)
     Route: 065
     Dates: start: 20200803, end: 20200831
  8. PREDNISOLON [Concomitant]
     Active Substance: PREDNISOLONE
     Dosage: UNK  (1 MG/TRTKG/NAP)
     Route: 065
     Dates: start: 20200916
  9. PREDNISOLONE. [Concomitant]
     Active Substance: PREDNISOLONE
     Dosage: 0.5 MG/KG
     Route: 054
     Dates: start: 20200914, end: 20200920
  10. PREDNISOLON [Concomitant]
     Active Substance: PREDNISOLONE
     Dosage: UNK (0.5 MG/TTKG/NAP)
     Route: 065
     Dates: start: 20200909, end: 20200915
  11. VITAMIN D [Concomitant]
     Active Substance: VITAMIN D NOS
     Indication: PRODUCT USED FOR UNKNOWN INDICATION
     Dosage: 400 IU
     Route: 065
  12. PREDNISOLONE. [Concomitant]
     Active Substance: PREDNISOLONE
     Indication: PRODUCT USED FOR UNKNOWN INDICATION
     Dosage: 1 MG/KG
     Route: 054
     Dates: start: 20200803, end: 20200906
  13. PREDNISOLONE. [Concomitant]
     Active Substance: PREDNISOLONE
     Dosage: 1 MG/KG
     Route: 054
     Dates: start: 20200914, end: 20201113
  14. PREDNISOLONE. [Concomitant]
     Active Substance: PREDNISOLONE
     Dosage: 0.75 MG/KG
     Route: 054
     Dates: start: 20200907, end: 20200913

REACTIONS (11)
  - Granulocyte count decreased [Recovering/Resolving]
  - Pyrexia [Recovered/Resolved]
  - Hepatomegaly [Unknown]
  - Alanine aminotransferase increased [Unknown]
  - Dyspnoea [Unknown]
  - Thrombocytopenia [Recovered/Resolved]
  - Aspartate aminotransferase increased [Unknown]
  - Hepatic enzyme increased [Unknown]
  - Platelet count decreased [Unknown]
  - Blood creatine phosphokinase MB increased [Not Recovered/Not Resolved]
  - Nausea [Unknown]

NARRATIVE: CASE EVENT DATE: 20200810
